FAERS Safety Report 8152088 (Version 5)
Quarter: 2013Q2

REPORT INFORMATION
  Report Type: Spontaneous
  Country: US (occurrence: US)
  Receive Date: 20110922
  Receipt Date: 20130502
  Transmission Date: 20140414
  Serious: Yes (Death, Other)
  Sender: FDA-Public Use
  Company Number: US-ASTRAZENECA-2011SE12558

PATIENT
  Age: 52 Year
  Sex: Male
  Weight: 100.2 kg

DRUGS (12)
  1. SEROQUEL [Suspect]
     Dosage: 25 MG Q. 4 TO 6 HOURS PRN
     Route: 048
     Dates: start: 20021023
  2. SEROQUEL [Suspect]
     Route: 048
     Dates: end: 2010
  3. LISINOPRIL [Concomitant]
     Route: 048
     Dates: start: 20110701
  4. LISINOPRIL [Concomitant]
     Dates: start: 20110203
  5. EFFEXOR XR [Concomitant]
     Route: 048
     Dates: start: 20110701
  6. OXYCODONE HCL [Concomitant]
     Indication: PAIN
     Route: 048
     Dates: start: 20110701
  7. CLONAZEPAM [Concomitant]
     Indication: ANXIETY
     Route: 048
     Dates: start: 20110701
  8. TRAMADOL HCL [Concomitant]
     Dosage: 50 MG TABLET, TAKE ONE TO TWO TABLETS THREE TO FOUR TIMES DAILY, MAXIMUM OF EIGHT TABLETS PER DAY
     Route: 048
     Dates: start: 20110701
  9. LEXAPRO [Concomitant]
     Route: 048
     Dates: start: 20021023
  10. XANAX [Concomitant]
     Indication: ANXIETY
     Dates: start: 20110203
  11. PERCOCET [Concomitant]
     Dosage: 2/325 ONE P.O. Q.I.D
     Route: 048
     Dates: start: 20110203
  12. CLONIDINE [Concomitant]
     Dates: start: 20110203

REACTIONS (7)
  - Toxicity to various agents [Fatal]
  - Cirrhosis alcoholic [Fatal]
  - Alcoholism [Fatal]
  - Pancreatitis [Unknown]
  - Diabetic coma [Unknown]
  - Type 2 diabetes mellitus [Unknown]
  - Adverse drug reaction [Unknown]
